FAERS Safety Report 20877136 (Version 1)
Quarter: 2022Q2

REPORT INFORMATION
  Report Type: Spontaneous
  Country: US (occurrence: None)
  Receive Date: 20220525
  Receipt Date: 20220525
  Transmission Date: 20220721
  Serious: Yes (Life-Threatening, Hospitalization, Disabling, Other)
  Sender: FDA-Public Use
  Company Number: None

PATIENT
  Age: 62 Year
  Sex: Female
  Weight: 56.25 kg

DRUGS (5)
  1. GADOLINIUM [Suspect]
     Active Substance: GADOLINIUM
  2. VITAMIN C [Concomitant]
     Active Substance: ASCORBIC ACID
  3. PROBIOTICS NOS [Concomitant]
     Active Substance: PROBIOTICS NOS
  4. VITAMINS [Concomitant]
     Active Substance: VITAMINS
  5. HERBALS/TONICS [Concomitant]

REACTIONS (14)
  - Contrast media toxicity [None]
  - Hypoaesthesia oral [None]
  - Gait disturbance [None]
  - Hemiplegia [None]
  - Dyspepsia [None]
  - Dysphagia [None]
  - Dyspnoea [None]
  - Muscle spasms [None]
  - Pain [None]
  - Paraesthesia [None]
  - Asthenia [None]
  - Insomnia [None]
  - Loss of personal independence in daily activities [None]
  - Hospice care [None]

NARRATIVE: CASE EVENT DATE: 20211003
